FAERS Safety Report 10036233 (Version 2)
Quarter: 2014Q2

REPORT INFORMATION
  Report Type: Report from Study
  Country: KR (occurrence: KR)
  Receive Date: 20140325
  Receipt Date: 20140408
  Transmission Date: 20141212
  Serious: Yes (Hospitalization)
  Sender: FDA-Public Use
  Company Number: KP-MERCK-1403KOR010550

PATIENT
  Age: 65 Year
  Sex: Female

DRUGS (3)
  1. PEGINTRON REDIPEN [Suspect]
     Indication: CHRONIC HEPATITIS C
     Dosage: 80 MG, QW,REDIPEN
     Route: 058
     Dates: start: 20140313
  2. RIBAVIRIN [Suspect]
     Indication: CHRONIC HEPATITIS C
     Dosage: 400 MG, BID
     Route: 048
     Dates: start: 20140313, end: 20140319
  3. RIBAVIRIN [Suspect]
     Dosage: STRENGTH : 400MG,BID
     Route: 048
     Dates: start: 20140325

REACTIONS (1)
  - Ileus [Recovered/Resolved]
